APPROVED DRUG PRODUCT: VOLMAX
Active Ingredient: ALBUTEROL SULFATE
Strength: EQ 8MG BASE
Dosage Form/Route: TABLET, EXTENDED RELEASE;ORAL
Application: N019604 | Product #001
Applicant: MURO PHARMACEUTICAL INC
Approved: Dec 23, 1992 | RLD: Yes | RS: No | Type: DISCN